FAERS Safety Report 17504052 (Version 3)
Quarter: 2020Q2

REPORT INFORMATION
  Report Type: Report from Study
  Country: MX (occurrence: MX)
  Receive Date: 20200305
  Receipt Date: 20200403
  Transmission Date: 20200713
  Serious: Yes (Hospitalization)
  Sender: FDA-Public Use
  Company Number: MX-REGENERON PHARMACEUTICALS, INC.-2020-22661

PATIENT

DRUGS (3)
  1. ZOLEDRONIC ACID [Concomitant]
     Active Substance: ZOLEDRONIC ACID
     Indication: PROPHYLAXIS
     Dosage: 4 MG, Q6W
     Route: 042
     Dates: start: 20190906
  2. CEMIPLIMAB [Suspect]
     Active Substance: CEMIPLIMAB
     Indication: NON-SMALL CELL LUNG CANCER STAGE IV
     Dosage: 350 MG, Q3W
     Route: 042
     Dates: start: 20190503
  3. PARACETAMOL [Concomitant]
     Active Substance: ACETAMINOPHEN
     Indication: PROPHYLAXIS
     Dosage: 500 MG, AS NECESSARY
     Route: 048
     Dates: start: 20190828

REACTIONS (1)
  - Atrial tachycardia [Recovered/Resolved]

NARRATIVE: CASE EVENT DATE: 20200229
